FAERS Safety Report 9817727 (Version 1)
Quarter: 2014Q1

REPORT INFORMATION
  Report Type: Spontaneous
  Country: US (occurrence: None)
  Receive Date: 20140110
  Receipt Date: 20140110
  Transmission Date: 20141002
  Serious: Yes (Other)
  Sender: FDA-Public Use
  Company Number: None

PATIENT
  Age: 67 Year
  Sex: Female
  Weight: 91.6 kg

DRUGS (5)
  1. XL-184 [Suspect]
     Indication: BREAST CANCER
     Route: 048
     Dates: start: 20130903
  2. ENTERIC COATED ASPIRIN (ASPIRIN ENTERIC COATED) [Concomitant]
  3. HYOSCYAMINE SUBLINGUAL [Concomitant]
  4. VITAMIN D3 (CHOLECALCIFEROL) [Concomitant]
  5. ZOMETA (ZOLEDRONIC ACID (ZOMETA)) [Concomitant]

REACTIONS (1)
  - Pulmonary embolism [None]
